FAERS Safety Report 10085003 (Version 2)
Quarter: 2014Q2

REPORT INFORMATION
  Report Type: Report from Study
  Country: US (occurrence: US)
  Receive Date: 20140417
  Receipt Date: 20140417
  Transmission Date: 20141212
  Serious: Yes (Other)
  Sender: FDA-Public Use
  Company Number: US-BAYER-2014-032114

PATIENT
  Age: 51 Year
  Sex: Male

DRUGS (2)
  1. STIVARGA [Suspect]
     Indication: RECTAL CANCER
     Dosage: 160 MG, QD
     Route: 048
     Dates: start: 2014
  2. STIVARGA [Suspect]
     Indication: RECTAL CANCER
     Dosage: STIVARGA 40MG TAB, TAKE 4 TABLETS BY MOUTH EVERY DAY FOR 21 DAYS, THEN 7 DAYS OFF.
     Route: 048

REACTIONS (8)
  - Hepatic neoplasm [Not Recovered/Not Resolved]
  - Neoplasm [Not Recovered/Not Resolved]
  - Hypertension [Recovered/Resolved]
  - Muscle twitching [Recovered/Resolved]
  - Dry mouth [Recovered/Resolved]
  - Glossodynia [Recovered/Resolved]
  - Mucosal inflammation [Recovered/Resolved]
  - Therapeutic product ineffective [None]
